FAERS Safety Report 16317635 (Version 3)
Quarter: 2020Q3

REPORT INFORMATION
  Report Type: Report from Study
  Country: US (occurrence: US)
  Receive Date: 20190516
  Receipt Date: 20200803
  Transmission Date: 20201102
  Serious: Yes (Hospitalization, Other)
  Sender: FDA-Public Use
  Company Number: US-SA-2019SA132841

PATIENT

DRUGS (17)
  1. SYNALAR [Concomitant]
     Active Substance: FLUOCINOLONE ACETONIDE
     Indication: ECZEMA
     Dosage: 0.25 %, BID
     Route: 061
  2. RESTASIS [Concomitant]
     Active Substance: CYCLOSPORINE
     Indication: DRY EYE
     Dosage: 0.05 %, QD, DROP PER EYE
     Route: 047
  3. ZONALON [Concomitant]
     Active Substance: DOXEPIN HYDROCHLORIDE
     Indication: PRURITUS
     Dosage: 5 %, QD
     Route: 061
  4. POTASSIUM [Concomitant]
     Active Substance: POTASSIUM
     Dosage: 99 MG, QD
     Route: 048
  5. DUPILUMAB [Suspect]
     Active Substance: DUPILUMAB
     Dosage: 300 MG, QOW
     Route: 058
  6. SYMBICORT [Concomitant]
     Active Substance: BUDESONIDE\FORMOTEROL FUMARATE DIHYDRATE
     Indication: CHRONIC OBSTRUCTIVE PULMONARY DISEASE
     Dosage: 80 UG, QD
     Route: 055
  7. FLONASE ALLERGY RELIEF [Concomitant]
     Active Substance: FLUTICASONE PROPIONATE
     Indication: HYPERSENSITIVITY
     Dosage: 50 UG, QD
     Route: 045
  8. VITAMIN D3 [Concomitant]
     Active Substance: CHOLECALCIFEROL
     Dosage: 5000 IU
     Route: 048
  9. HALOG [Concomitant]
     Active Substance: HALCINONIDE
     Indication: DERMATITIS ATOPIC
     Dosage: 0.1 %, BID
     Route: 061
     Dates: start: 201905
  10. IMIQUIMOD. [Concomitant]
     Active Substance: IMIQUIMOD
     Indication: SQUAMOUS CELL CARCINOMA
     Dosage: 5 %
     Route: 061
  11. ALBUTEROL [SALBUTAMOL] [Concomitant]
     Active Substance: ALBUTEROL
     Indication: ASTHMA
     Dosage: 0.03 MG/3 ML, QD
     Route: 055
  12. DUPILUMAB [Suspect]
     Active Substance: DUPILUMAB
     Indication: DERMATITIS ATOPIC
     Dosage: 600 MG, 1X
     Route: 058
     Dates: start: 20190207, end: 20190207
  13. PREDNISONE. [Concomitant]
     Active Substance: PREDNISONE
     Dosage: 20 MG
     Route: 048
  14. TRIAMCINOLONE ACETONIDE. [Concomitant]
     Active Substance: TRIAMCINOLONE ACETONIDE
     Indication: ECZEMA
     Dosage: 0.1 %, BID
     Route: 061
  15. SPIRIVA [Concomitant]
     Active Substance: TIOTROPIUM BROMIDE MONOHYDRATE
     Indication: CHRONIC OBSTRUCTIVE PULMONARY DISEASE
     Dosage: 25 UG, QD
     Route: 055
  16. LEVOTHYROXINE. [Concomitant]
     Active Substance: LEVOTHYROXINE
     Indication: THYROID DISORDER
     Dosage: 75 UG, QD
     Route: 048
  17. ASPIRIN [ACETYLSALICYLIC ACID] [Concomitant]
     Active Substance: ASPIRIN
     Dosage: 81 MG, QD
     Route: 048

REACTIONS (4)
  - Pituitary tumour [Not Recovered/Not Resolved]
  - COVID-19 [Unknown]
  - Hallucination [Unknown]
  - Dementia [Not Recovered/Not Resolved]

NARRATIVE: CASE EVENT DATE: 2019
